FAERS Safety Report 17641009 (Version 1)
Quarter: 2020Q2

REPORT INFORMATION
  Report Type: Spontaneous
  Country: CA (occurrence: CA)
  Receive Date: 20200407
  Receipt Date: 20200407
  Transmission Date: 20200713
  Serious: Yes (Hospitalization)
  Sender: FDA-Public Use
  Company Number: CA-NAPPMUNDI-CAN-2020-0010765

PATIENT
  Age: 71 Year
  Sex: Female

DRUGS (29)
  1. QUINAPRIL HYDROCHLORIDE. [Suspect]
     Active Substance: QUINAPRIL HYDROCHLORIDE
     Indication: CORONARY ARTERY DISEASE
     Dosage: 40 MG, DAILY (1 EVERY 1 DAYS)
     Route: 065
  2. ACETAMINOPHEN. [Concomitant]
     Active Substance: ACETAMINOPHEN
     Indication: FIBROMYALGIA
     Dosage: 650 MG, UNK
  3. MORPHINE SULFATE. [Suspect]
     Active Substance: MORPHINE SULFATE
     Indication: FIBROMYALGIA
     Dosage: 10 MG, UNK
     Route: 065
  4. ASCORBIC ACID W/VACCINIUM MACROCARPON [Concomitant]
     Indication: BLADDER ABLATION
     Dosage: 500 MG, UNK
  5. LACTULOSE. [Concomitant]
     Active Substance: LACTULOSE
     Indication: CONSTIPATION
     Dosage: 15 ML, DAILY (1 EVERY 1 DAYS)
  6. DIPYRIDAMOLE. [Concomitant]
     Active Substance: DIPYRIDAMOLE
     Indication: CEREBROVASCULAR ACCIDENT
     Dosage: 200 MG, DAILY (2 EVERY 1 DAYS)
  7. PHOSPHORIC ACID [Concomitant]
     Active Substance: PHOSPHORIC ACID
     Indication: CONSTIPATION
     Dosage: UNK
  8. ROSUVASTATIN. [Concomitant]
     Active Substance: ROSUVASTATIN
     Indication: CEREBROVASCULAR ACCIDENT
     Dosage: 20 MG, DAILY (2 EVERY 1 DAYS)
  9. SALBUTAMOL [Concomitant]
     Active Substance: ALBUTEROL
     Dosage: 100 MCG, UNK
  10. LEVOFLOXACIN. [Concomitant]
     Active Substance: LEVOFLOXACIN
     Indication: URINARY TRACT INFECTION
     Dosage: 250 MG, DAILY (1 EVERY 1 DAYS)
  11. POTASSIUM SORBATE [Concomitant]
     Active Substance: POTASSIUM SORBATE
     Indication: CONSTIPATION
     Dosage: UNK
  12. SODIUM BENZOATE [Concomitant]
     Active Substance: SODIUM BENZOATE
     Dosage: UNK
  13. ACEBUTOLOL [Suspect]
     Active Substance: ACEBUTOLOL
     Indication: CORONARY ARTERY DISEASE
     Dosage: 200 MG, DAILY (2 EVERY 1 DAYS)
     Route: 065
  14. CARBAMAZEPINE. [Suspect]
     Active Substance: CARBAMAZEPINE
     Indication: SEIZURE
     Dosage: 200 MG, DAILY (2 EVERY 1 DAYS)
     Route: 065
  15. GALANTAMINE. [Concomitant]
     Active Substance: GALANTAMINE
     Indication: DEMENTIA
     Dosage: 16 MG, DAILY (1 EVERY 1 DAYS)
  16. AMLODIPINE BESILATE [Suspect]
     Active Substance: AMLODIPINE BESYLATE
     Indication: CORONARY ARTERY DISEASE
     Dosage: 5 MG, DAILY (1 EVERY 1 DAYS)
     Route: 065
  17. CYCLOBENZAPRINE. [Suspect]
     Active Substance: CYCLOBENZAPRINE
     Indication: FIBROMYALGIA
     Dosage: 5 MG, DAILY (1 EVERY 1 DAYS)
     Route: 065
  18. BISACODYL. [Concomitant]
     Active Substance: BISACODYL
     Indication: CONSTIPATION
     Dosage: UNK
  19. TIOTROPIUM [Concomitant]
     Active Substance: TIOTROPIUM
     Dosage: 18 MCG, DAILY (1 EVERY 1 DAYS)
  20. DILTIAZEM. [Suspect]
     Active Substance: DILTIAZEM
     Indication: CORONARY ARTERY DISEASE
     Dosage: 360 MG, DAILY (1 EVERY 1 DAYS)
     Route: 065
  21. FUROSEMIDE. [Suspect]
     Active Substance: FUROSEMIDE
     Indication: OEDEMA
     Dosage: 40 MG, DAILY (1 EVERY 1 DAYS)
     Route: 065
  22. NITROGLYCERIN. [Suspect]
     Active Substance: NITROGLYCERIN
     Indication: CORONARY ARTERY DISEASE
     Dosage: UNK
     Route: 042
  23. OXAZEPAM. [Suspect]
     Active Substance: OXAZEPAM
     Indication: INSOMNIA
     Dosage: 15 MG, DAILY (1 EVERY 1 DAYS)
     Route: 065
  24. GLUCOSAMINE [Concomitant]
     Active Substance: GLUCOSAMINE
     Indication: ARTHRITIS
     Dosage: 500 MG, DAILY (2 EVERY 1 DAYS)
  25. LEVOTHYROXINE. [Concomitant]
     Active Substance: LEVOTHYROXINE
     Indication: THYROID DISORDER
     Dosage: 0.088 MG, DAILY (1 EVERY 1 DAYS)
  26. AMITRIPTYLINE [Suspect]
     Active Substance: AMITRIPTYLINE
     Indication: INSOMNIA
     Dosage: 75 MG, DAILY (1 EVERY 1 DAYS)
     Route: 065
  27. GLYCEROL [Concomitant]
     Active Substance: GLYCERIN
     Indication: CONSTIPATION
     Dosage: UNK
  28. MAGNESIUM HYDROXIDE. [Concomitant]
     Active Substance: MAGNESIUM HYDROXIDE
     Indication: CONSTIPATION
     Dosage: 311 MG, UNK
  29. OMEPRAZOLE. [Concomitant]
     Active Substance: OMEPRAZOLE
     Indication: DUODENAL ULCER
     Dosage: 20 MG, DAILY (1 EVERY 1 DAYS)

REACTIONS (2)
  - Bladder disorder [Recovered/Resolved]
  - Orthostatic hypotension [Recovered/Resolved]
